FAERS Safety Report 7599371 (Version 2)
Quarter: 2013Q1

REPORT INFORMATION
  Report Type: Spontaneous
  Country: US (occurrence: US)
  Receive Date: 20100921
  Receipt Date: 20130306
  Transmission Date: 20140127
  Serious: No
  Sender: FDA-Public Use
  Company Number: US-BIOGENIDEC-2010BI032256

PATIENT
  Sex: Female

DRUGS (1)
  1. TYSABRI [Suspect]
     Indication: MULTIPLE SCLEROSIS
     Route: 042
     Dates: start: 20091120

REACTIONS (4)
  - Tooth discolouration [Not Recovered/Not Resolved]
  - Agraphia [Not Recovered/Not Resolved]
  - Gingival pain [Not Recovered/Not Resolved]
  - Blood count abnormal [Unknown]
